FAERS Safety Report 7735901-X (Version None)
Quarter: 2011Q3

REPORT INFORMATION
  Report Type: 
  Country: None (occurrence: None)
  Receive Date: 20110908
  Receipt Date: 20090105
  Transmission Date: 20111222
  Serious: No
  Sender: FDA-Public Use
  Company Number: 2009BI000364

PATIENT
  Sex: Female

DRUGS (4)
  1. AVONEX [Concomitant]
     Route: 030
     Dates: start: 20110301
  2. TYSABRI [Suspect]
     Indication: MULTIPLE SCLEROSIS
     Route: 042
     Dates: start: 20080620, end: 20100301
  3. TYSABRI [Suspect]
     Route: 042
     Dates: start: 20101201, end: 20110101
  4. AVONEX [Concomitant]
     Indication: MULTIPLE SCLEROSIS
     Route: 030
     Dates: start: 20110301

REACTIONS (5)
  - FATIGUE [None]
  - MUSCLE RIGIDITY [None]
  - INITIAL INSOMNIA [None]
  - FALL [None]
  - VERTIGO POSITIONAL [None]
